FAERS Safety Report 18565371 (Version 6)
Quarter: 2021Q1

REPORT INFORMATION
  Report Type: Report from Study
  Country: BR (occurrence: BR)
  Receive Date: 20201201
  Receipt Date: 20210319
  Transmission Date: 20210419
  Serious: Yes (Other)
  Sender: FDA-Public Use
  Company Number: NVSC2020BR315080

PATIENT
  Age: 48 Year
  Sex: Female

DRUGS (4)
  1. COSENTYX [Suspect]
     Active Substance: SECUKINUMAB
     Dosage: 300 MG (2 PENS), QMO
     Route: 065
     Dates: start: 20190112
  2. COSENTYX [Suspect]
     Active Substance: SECUKINUMAB
     Dosage: UNK
     Route: 065
     Dates: start: 201902
  3. COSENTYX [Suspect]
     Active Substance: SECUKINUMAB
     Indication: PSORIASIS
     Dosage: UNK
     Route: 065
     Dates: start: 201901
  4. COSENTYX [Suspect]
     Active Substance: SECUKINUMAB
     Dosage: UNK (IN OCT 2020 OR NOV 2020)
     Route: 065
     Dates: start: 2020

REACTIONS (13)
  - Joint dislocation [Unknown]
  - Psoriasis [Not Recovered/Not Resolved]
  - Product availability issue [Unknown]
  - Gait inability [Recovered/Resolved]
  - Gait disturbance [Recovering/Resolving]
  - Pruritus [Not Recovered/Not Resolved]
  - Foot fracture [Recovering/Resolving]
  - Burns third degree [Not Recovered/Not Resolved]
  - Rib fracture [Unknown]
  - Open fracture [Unknown]
  - Erythema [Not Recovered/Not Resolved]
  - Road traffic accident [Not Recovered/Not Resolved]
  - Fractured coccyx [Unknown]

NARRATIVE: CASE EVENT DATE: 20201108
